FAERS Safety Report 4900965-5 (Version None)
Quarter: 2006Q1

REPORT INFORMATION
  Report Type: 
  Country: None (occurrence: None)
  Receive Date: 20060201
  Receipt Date: 20060109
  Transmission Date: 20060701
  Serious: Yes (Hospitalization)
  Sender: FDA-Public Use
  Company Number: ES200601003914

PATIENT
  Age: 68 Year
  Sex: Female

DRUGS (8)
  1. FORTEO [Suspect]
     Indication: OSTEOPOROSIS
     Dosage: 20 UG, DAILY (1/D), SUBCUTANEOUS
     Route: 058
     Dates: start: 20060101, end: 20060109
  2. FORTEO [Suspect]
     Indication: OSTEOPOROSIS
     Dosage: 20 UG, DAILY (1/D), SUBCUTANEOUS
     Route: 058
     Dates: start: 20060111
  3. FORTEO PEN (250MCG/ML [Concomitant]
  4. CORTISONE ACETATE [Concomitant]
  5. TRYPTIZOL (AMITRIPTYLINE  HYDROCHLORIDE) [Concomitant]
  6. ANAGASTRA (PANTOPRAZOLE SODIUM) [Concomitant]
  7. ATARAX [Concomitant]
  8. NATECAL       (CALCIUM CARBONATE) [Concomitant]

REACTIONS (2)
  - APPENDICITIS [None]
  - PERITONITIS [None]
